FAERS Safety Report 12752768 (Version 1)
Quarter: 2016Q3

REPORT INFORMATION
  Report Type: Spontaneous
  Country: US (occurrence: US)
  Receive Date: 20160915
  Receipt Date: 20160915
  Transmission Date: 20161109
  Serious: No
  Sender: FDA-Public Use
  Company Number: None

PATIENT
  Age: 51 Year
  Sex: Female

DRUGS (1)
  1. HARVONI [Suspect]
     Active Substance: LEDIPASVIR\SOFOSBUVIR
     Indication: CHRONIC HEPATITIS C
     Dosage: 90-400MG DAILY ORAL
     Route: 048
     Dates: start: 20160822

REACTIONS (3)
  - Headache [None]
  - Cerebral disorder [None]
  - Feeling abnormal [None]

NARRATIVE: CASE EVENT DATE: 20160915
